FAERS Safety Report 8510825-9 (Version None)
Quarter: 2012Q3

REPORT INFORMATION
  Report Type: 
  Country: None (occurrence: None)
  Receive Date: 20120716
  Receipt Date: 20120706
  Transmission Date: 20120928
  Serious: Yes (Hospitalization)
  Sender: FDA-Public Use
  Company Number: FR-VERTEX PHARMACEUTICALS INC.-000000000000000480

PATIENT
  Sex: Male
  Weight: 77 kg

DRUGS (10)
  1. PEGASYS [Concomitant]
     Indication: HEPATITIS C
     Dosage: DOSAGE FORM: UNSPECIFIED
     Route: 065
     Dates: start: 20110316, end: 20111207
  2. ZOLOFT [Concomitant]
     Dosage: DOSAGE FORM: UNSPECIFIED
     Route: 065
  3. TELAPREVIR [Suspect]
     Indication: HEPATITIS C
     Dosage: DOSAGE FORM: TABLET
     Route: 065
     Dates: start: 20110920, end: 20111205
  4. VALSARTAN [Concomitant]
     Dosage: DOSAGE FORM: UNSPECIFIED
     Route: 065
  5. NEORECORMON [Concomitant]
     Dosage: DOSAGE FORM: UNSPECIFIED
     Route: 065
  6. PRAZEPAM [Concomitant]
     Dosage: DOSAGE FORM: UNSPECIFIED
     Route: 065
  7. CRESTOR [Concomitant]
     Dosage: DOSAGE FORM: UNSPECIFIED
     Route: 065
  8. PANTOPRAZOLE SODIUM [Concomitant]
     Dosage: DOSAGE FORM: UNSPECIFIED
     Route: 065
  9. COPEGUS [Concomitant]
     Indication: HEPATITIS C
     Dosage: DOSAGE FORM: UNSPECIFIED
     Route: 065
     Dates: start: 20110316, end: 20111102
  10. COPEGUS [Concomitant]
     Dosage: DOSAGE FORM: UNSPECIFIED
     Route: 065
     Dates: start: 20111103, end: 20111122

REACTIONS (1)
  - DRUG ERUPTION [None]
